FAERS Safety Report 11755919 (Version 1)
Quarter: 2015Q4

REPORT INFORMATION
  Report Type: Spontaneous
  Country: US (occurrence: US)
  Receive Date: 20151119
  Receipt Date: 20151119
  Transmission Date: 20160304
  Serious: No
  Sender: FDA-Public Use
  Company Number: US-ALLERGAN-1505736US

PATIENT
  Sex: Female
  Weight: 95.69 kg

DRUGS (2)
  1. ALPHAGAN P [Suspect]
     Active Substance: BRIMONIDINE TARTRATE
     Indication: HERPES ZOSTER
     Dosage: UNK
  2. ALPHAGAN P [Suspect]
     Active Substance: BRIMONIDINE TARTRATE
     Dosage: 6 GTT, TID
     Route: 047
     Dates: start: 201502

REACTIONS (5)
  - Off label use [Unknown]
  - Expired product administered [Unknown]
  - Therapeutic response decreased [Unknown]
  - Overdose [Unknown]
  - Ocular hyperaemia [Unknown]
